FAERS Safety Report 5203349-8 (Version None)
Quarter: 2007Q1

REPORT INFORMATION
  Report Type: 
  Country: None (occurrence: None)
  Receive Date: 20070110
  Receipt Date: 20070102
  Transmission Date: 20070707
  Serious: Yes (Other)
  Sender: FDA-Public Use
  Company Number: US-JNJFOC-20070100647

PATIENT
  Age: 38 Year
  Sex: Female
  Weight: 78.02 kg

DRUGS (6)
  1. MONISTAT 1 COMBINATION PACK W/PREF APPL [Suspect]
     Route: 061
  2. MONISTAT 1 COMBINATION PACK W/PREF APPL [Suspect]
     Indication: VULVOVAGINAL MYCOTIC INFECTION
     Dosage: 100MG, 3 APPLICATIONS ON 22-DEC-06, THEN TWICE DAILY FROM 23 TO 26-DEC-06, AND ONCE ON 27-DEC-06.
     Route: 061
  3. MONISTAT 1 COMBINATION PACK W/PREF APPL [Suspect]
     Route: 067
  4. MONISTAT 1 COMBINATION PACK W/PREF APPL [Suspect]
     Route: 067
  5. AMOXICILLIN [Concomitant]
     Indication: SINUSITIS
  6. ALLEGRA-D 12 HOUR [Concomitant]

REACTIONS (3)
  - BLOOD PRESSURE DECREASED [None]
  - FLUSHING [None]
  - SYNCOPE [None]
